FAERS Safety Report 7339318-1 (Version None)
Quarter: 2011Q1

REPORT INFORMATION
  Report Type: 
  Country: None (occurrence: None)
  Receive Date: 20110308
  Receipt Date: 20110304
  Transmission Date: 20110831
  Serious: Yes (Hospitalization)
  Sender: FDA-Public Use
  Company Number: GB-PFIZER INC-2011045389

PATIENT
  Age: 62 Year
  Sex: Female
  Weight: 90 kg

DRUGS (7)
  1. VENLAFAXINE HCL [Suspect]
     Indication: DEPRESSION
  2. MIRTAZAPINE [Concomitant]
     Indication: DEPRESSION
  3. VENLAFAXINE HCL [Suspect]
     Indication: ANXIETY
     Dosage: 225 MG, UNK
     Route: 048
     Dates: start: 20100101, end: 20110120
  4. MIRTAZAPINE [Concomitant]
     Indication: ANXIETY
     Dosage: 45 MG, 1X/DAY
     Route: 048
     Dates: start: 20101001, end: 20110117
  5. OMEPRAZOLE [Concomitant]
     Indication: HYPERCHLORHYDRIA
     Dosage: 20 MG, 1X/DAY
     Route: 048
  6. PREDNISOLONE [Concomitant]
     Indication: BRONCHOSPASM
     Dosage: 20 MG, 1X/DAY
     Route: 048
     Dates: start: 20101201, end: 20110124
  7. QUETIAPINE [Concomitant]
     Indication: ANXIETY
     Dosage: 25 MG, 2X/DAY
     Route: 048
     Dates: start: 20110112, end: 20110117

REACTIONS (6)
  - PYREXIA [None]
  - MYOCLONUS [None]
  - SEROTONIN SYNDROME [None]
  - BLOOD PRESSURE FLUCTUATION [None]
  - HYPERHIDROSIS [None]
  - HYPERREFLEXIA [None]
